FAERS Safety Report 4468031-3 (Version None)
Quarter: 2004Q4

REPORT INFORMATION
  Report Type: 
  Country: None (occurrence: None)
  Receive Date: 20041007
  Receipt Date: 20040927
  Transmission Date: 20050328
  Serious: Yes (Hospitalization)
  Sender: FDA-Public Use
  Company Number: RU-BRISTOL-MYERS SQUIBB COMPANY-12712527

PATIENT
  Age: 54 Year
  Sex: Female

DRUGS (3)
  1. CARBOPLATIN [Suspect]
     Indication: OVARIAN CANCER
     Dosage: 1ST DOSE: 16JUN03
     Route: 042
     Dates: start: 20030717, end: 20030717
  2. PACLITAXEL [Suspect]
     Indication: OVARIAN CANCER
     Dosage: 1ST DOSE: 16JUN03
     Route: 042
     Dates: start: 20030717, end: 20030716
  3. INTERFERON GAMMA [Suspect]
     Indication: OVARIAN CANCER
     Dosage: 1ST DOSE: 16JUN03
     Route: 058
     Dates: start: 20030728, end: 20030728

REACTIONS (2)
  - DEHYDRATION [None]
  - VOMITING [None]
